FAERS Safety Report 19207569 (Version 1)
Quarter: 2021Q2

REPORT INFORMATION
  Report Type: Spontaneous
  Country: PL (occurrence: PL)
  Receive Date: 20210503
  Receipt Date: 20210503
  Transmission Date: 20210717
  Serious: Yes (Other)
  Sender: FDA-Public Use
  Company Number: NVSC2021PL099260

PATIENT
  Age: 9 Week
  Sex: Male

DRUGS (6)
  1. CEFTRIAXONE. [Suspect]
     Active Substance: CEFTRIAXONE
     Indication: PNEUMONIA
  2. CLARITHROMYCIN. [Suspect]
     Active Substance: CLARITHROMYCIN
     Indication: OTITIS MEDIA ACUTE
     Dosage: UNK UNK, UNKNOWN
     Route: 065
  3. CLARITHROMYCIN. [Suspect]
     Active Substance: CLARITHROMYCIN
     Indication: INTERSTITIAL LUNG DISEASE
  4. CEFTRIAXONE. [Suspect]
     Active Substance: CEFTRIAXONE
     Indication: OTITIS MEDIA ACUTE
     Dosage: UNK, UNKNOWN
     Route: 065
  5. CEFTRIAXONE. [Suspect]
     Active Substance: CEFTRIAXONE
     Indication: INTERSTITIAL LUNG DISEASE
  6. AMOXICILLIN/CLAVULANIC ACID [Concomitant]
     Active Substance: AMOXICILLIN\CLAVULANIC ACID
     Indication: PNEUMONIA
     Dosage: UNK, UNKNOWN
     Route: 065

REACTIONS (1)
  - Drug ineffective [Unknown]
